FAERS Safety Report 8502148-9 (Version None)
Quarter: 2012Q3

REPORT INFORMATION
  Report Type: 
  Country: None (occurrence: None)
  Receive Date: 20120711
  Receipt Date: 20120614
  Transmission Date: 20120928
  Serious: No
  Sender: FDA-Public Use
  Company Number: US-BAYER-2012-067440

PATIENT
  Sex: Female

DRUGS (1)
  1. MIRENA [Suspect]
     Dosage: 20 MCG/24HR, CONT
     Route: 015

REACTIONS (6)
  - HORMONE LEVEL ABNORMAL [None]
  - ALOPECIA [None]
  - PALPITATIONS [None]
  - PANIC ATTACK [None]
  - HYPOAESTHESIA [None]
  - UNEVALUABLE EVENT [None]
